FAERS Safety Report 13153473 (Version 1)
Quarter: 2017Q1

REPORT INFORMATION
  Report Type: Spontaneous
  Country: US (occurrence: US)
  Receive Date: 20170121
  Receipt Date: 20170121
  Transmission Date: 20170428
  Serious: Yes (Other)
  Sender: FDA-Public Use
  Company Number: None

PATIENT
  Age: 49 Year
  Sex: Female
  Weight: 99 kg

DRUGS (1)
  1. CIPROFLOXACIN /CO-CIPROFLOXIN [Suspect]
     Active Substance: CIPROFLOXACIN
     Indication: RESPIRATORY TRACT INFECTION
     Dosage: ?          QUANTITY:1 TABLET(S);?
     Route: 048
     Dates: start: 20170119, end: 20170121

REACTIONS (9)
  - Hallucination [None]
  - Visual impairment [None]
  - Migraine with aura [None]
  - Vomiting [None]
  - Headache [None]
  - Micturition frequency decreased [None]
  - Pyrexia [None]
  - Impaired work ability [None]
  - Nausea [None]

NARRATIVE: CASE EVENT DATE: 20170121
